FAERS Safety Report 5301464-1 (Version None)
Quarter: 2007Q2

REPORT INFORMATION
  Report Type: 
  Country: None (occurrence: None)
  Receive Date: 20070418
  Receipt Date: 20070307
  Transmission Date: 20071010
  Serious: Yes (Hospitalization, Other)
  Sender: FDA-Public Use
  Company Number: US-PFIZER INC-2006105715

PATIENT
  Sex: Female
  Weight: 74.8 kg

DRUGS (3)
  1. CELEBREX [Suspect]
     Indication: PAIN
     Route: 048
  2. CELEBREX [Suspect]
     Indication: ARTHRALGIA
  3. VIOXX [Suspect]
     Route: 048

REACTIONS (3)
  - ANEURYSM [None]
  - MYOCARDIAL INFARCTION [None]
  - ORGAN FAILURE [None]
